FAERS Safety Report 17083187 (Version 5)
Quarter: 2020Q3

REPORT INFORMATION
  Report Type: Report from Study
  Country: US (occurrence: US)
  Receive Date: 20191127
  Receipt Date: 20200710
  Transmission Date: 20201102
  Serious: Yes (Hospitalization)
  Sender: FDA-Public Use
  Company Number: NVSC2019US046624

PATIENT
  Age: 17 Year
  Sex: Male

DRUGS (17)
  1. METHOTREXATE. [Suspect]
     Active Substance: METHOTREXATE
     Indication: ACUTE LYMPHOCYTIC LEUKAEMIA
     Dosage: 15 MG IN 8 ML SODIUM CHLORIDE
     Route: 037
     Dates: start: 20190514, end: 20191106
  2. VINCRISTINE [Suspect]
     Active Substance: VINCRISTINE
     Indication: ACUTE LYMPHOCYTIC LEUKAEMIA
     Dosage: 2 MILLIGRAM IN SODIUM CHLORIDE 0.9%
     Route: 042
     Dates: start: 20190522, end: 20191106
  3. PEGASPARGASE [Suspect]
     Active Substance: PEGASPARGASE
     Dosage: 2500 INTERNATIONAL UNIT
     Route: 042
     Dates: start: 20191114
  4. BENADRYL [Concomitant]
     Active Substance: DIPHENHYDRAMINE HYDROCHLORIDE
     Indication: URTICARIA
  5. PEGASPARGASE [Suspect]
     Active Substance: PEGASPARGASE
     Indication: ACUTE LYMPHOCYTIC LEUKAEMIA
     Dosage: 2500 INTERNATIONAL UNIT
     Route: 042
     Dates: start: 20190619, end: 20191106
  6. BENADRYL [Concomitant]
     Active Substance: DIPHENHYDRAMINE HYDROCHLORIDE
     Indication: PRURITUS
     Dosage: PRN
     Route: 065
     Dates: start: 20190325
  7. ACETAMINOPHEN. [Concomitant]
     Active Substance: ACETAMINOPHEN
     Indication: PYREXIA
     Dosage: PRN
     Route: 065
     Dates: start: 20190330
  8. INC424A [Suspect]
     Active Substance: RUXOLITINIB
     Dosage: 65 MG BID
     Route: 048
     Dates: start: 20191111
  9. CYTARABINE. [Suspect]
     Active Substance: CYTARABINE
     Dosage: 135 MG
     Route: 042
     Dates: start: 20191122
  10. VINCRISTINE [Suspect]
     Active Substance: VINCRISTINE
     Dosage: 2 MILLIGRAM IN SODIUM CHLORIDE 0.9%
     Route: 042
     Dates: start: 20191113
  11. INC424A [Suspect]
     Active Substance: RUXOLITINIB
     Indication: ACUTE LYMPHOCYTIC LEUKAEMIA
     Dosage: 65 MG, BID
     Route: 048
     Dates: start: 20190506, end: 20191106
  12. KYTRIL [Concomitant]
     Active Substance: GRANISETRON HYDROCHLORIDE
     Indication: NAUSEA
     Dosage: UNK
     Route: 065
     Dates: start: 20190525
  13. METHOTREXATE. [Suspect]
     Active Substance: METHOTREXATE
     Dosage: 15 MG IN 8 ML SODIUM CHLORIDE
     Route: 037
     Dates: start: 20191113
  14. MERCAPTOPURINE. [Suspect]
     Active Substance: MERCAPTOPURINE
     Indication: ACUTE LYMPHOCYTIC LEUKAEMIA
     Dosage: 50 MG
     Route: 048
     Dates: start: 20190506, end: 20191106
  15. MERCAPTOPURINE. [Suspect]
     Active Substance: MERCAPTOPURINE
     Dosage: 50 MG
     Route: 048
     Dates: start: 20191113
  16. CYTARABINE. [Suspect]
     Active Substance: CYTARABINE
     Indication: ACUTE LYMPHOCYTIC LEUKAEMIA
     Dosage: 135 MG
     Route: 042
     Dates: start: 20190506, end: 20191106
  17. VANCOMYCIN [Concomitant]
     Active Substance: VANCOMYCIN
     Indication: PRODUCT USED FOR UNKNOWN INDICATION
     Dosage: UNK
     Route: 065

REACTIONS (3)
  - Tachycardia [Recovered/Resolved]
  - Sepsis [Recovered/Resolved]
  - Adenovirus infection [Recovering/Resolving]

NARRATIVE: CASE EVENT DATE: 20191106
